FAERS Safety Report 13844206 (Version 2)
Quarter: 2017Q3

REPORT INFORMATION
  Report Type: Spontaneous
  Country: US (occurrence: US)
  Receive Date: 20170808
  Receipt Date: 20170828
  Transmission Date: 20171127
  Serious: No
  Sender: FDA-Public Use
  Company Number: US-SMITH AND NEPHEW, INC-2017SMT00507

PATIENT
  Sex: Female
  Weight: 90.7 kg

DRUGS (6)
  1. PROSHIELD PLUS SKIN PROTECTANT [Suspect]
     Active Substance: DIMETHICONE
     Indication: FUNGAL SKIN INFECTION
     Dosage: UNK
     Route: 061
  2. METROPOLOL [Concomitant]
     Active Substance: METOPROLOL
     Dosage: UNK
  3. LANTUS [Concomitant]
     Active Substance: INSULIN GLARGINE
     Dosage: UNK, 1X/DAY
  4. NOVOLOG [Concomitant]
     Active Substance: INSULIN ASPART
     Dosage: UNK, AS NEEDED
  5. COUMADIN [Concomitant]
     Active Substance: WARFARIN SODIUM
     Dosage: UNK
  6. PROSHIELD PLUS SKIN PROTECTANT [Suspect]
     Active Substance: DIMETHICONE
     Indication: PRURITUS

REACTIONS (1)
  - No adverse event [Unknown]
